FAERS Safety Report 25943476 (Version 1)
Quarter: 2025Q4

REPORT INFORMATION
  Report Type: Spontaneous
  Country: EU (occurrence: EU)
  Receive Date: 20251021
  Receipt Date: 20251021
  Transmission Date: 20260119
  Serious: Yes (Hospitalization)
  Sender: JOHNSON AND JOHNSON
  Company Number: None

PATIENT
  Age: 66 Year
  Sex: Male
  Weight: 115 kg

DRUGS (8)
  1. DARZALEX [Suspect]
     Active Substance: DARATUMUMAB
     Indication: Plasma cell myeloma refractory
     Dosage: 7 CURES DARATUMUMAB + CARFILZOMIB + DEXA
     Dates: start: 2022, end: 2023
  2. DARZALEX [Suspect]
     Active Substance: DARATUMUMAB
     Dosage: HEBDOMADAIRE JUSQU^AU 05/04/2025 PUIS PASSAGE EN MENSUEL
     Dates: start: 20231027
  3. POMALIDOMIDE [Suspect]
     Active Substance: POMALIDOMIDE
     Indication: Plasma cell myeloma refractory
     Dosage: J1-J21 CHAQUE MOIS
     Route: 048
     Dates: start: 20231027
  4. LENALIDOMIDE [Suspect]
     Active Substance: LENALIDOMIDE
     Indication: Plasma cell myeloma
     Dosage: 4 CURES VRD (BORTEZOMIB + LENALIDOMIDE + DEXA)
     Route: 048
     Dates: start: 2020, end: 2020
  5. LENALIDOMIDE [Suspect]
     Active Substance: LENALIDOMIDE
     Dosage: ENTRETIEN POST AUTOGREFFE
     Route: 048
     Dates: start: 20210119, end: 202301
  6. DEXAMETHASONE [Concomitant]
     Active Substance: DEXAMETHASONE
     Indication: Plasma cell myeloma refractory
     Dosage: 4 CURES
     Dates: start: 2020, end: 2020
  7. DEXAMETHASONE [Concomitant]
     Active Substance: DEXAMETHASONE
     Dosage: 7 CURES
     Dates: start: 2022, end: 2023
  8. DEXAMETHASONE [Concomitant]
     Active Substance: DEXAMETHASONE
     Dosage: CURES HEBDOMADAIRES JUSQU^AU 05/04/2024 PUIS MENSUELLES
     Dates: start: 20231027

REACTIONS (3)
  - Myalgia [Not Recovered/Not Resolved]
  - Muscle spasms [Not Recovered/Not Resolved]
  - Blood creatine phosphokinase increased [Not Recovered/Not Resolved]

NARRATIVE: CASE EVENT DATE: 20200101
